FAERS Safety Report 16811109 (Version 1)
Quarter: 2019Q3

REPORT INFORMATION
  Report Type: Spontaneous
  Country: IT (occurrence: IT)
  Receive Date: 20190916
  Receipt Date: 20190916
  Transmission Date: 20191005
  Serious: Yes (Other)
  Sender: FDA-Public Use
  Company Number: PHHY2019IT210437

PATIENT
  Age: 60 Year
  Sex: Female

DRUGS (2)
  1. GEMCITABINE. [Suspect]
     Active Substance: GEMCITABINE
     Indication: GALLBLADDER CANCER
     Dosage: 1600 MG, CYCLIC
     Route: 042
     Dates: start: 20190416, end: 20190822
  2. OXALIPLATIN. [Suspect]
     Active Substance: OXALIPLATIN
     Indication: GALLBLADDER CANCER
     Dosage: 140 MG, CYCLIC
     Route: 042
     Dates: start: 20190416, end: 20190822

REACTIONS (3)
  - Flushing [Recovered/Resolved]
  - Erythema [Recovered/Resolved]
  - Hypertension [Recovered/Resolved]

NARRATIVE: CASE EVENT DATE: 20190822
